FAERS Safety Report 9231887 (Version 2)
Quarter: 2013Q2

REPORT INFORMATION
  Report Type: Spontaneous
  Country: US (occurrence: US)
  Receive Date: 20130415
  Receipt Date: 20130416
  Transmission Date: 20140414
  Serious: Yes (Life-Threatening, Hospitalization, Other)
  Sender: FDA-Public Use
  Company Number: US-ABBOTT-13P-163-1075738-00

PATIENT
  Age: 55 Year
  Sex: Female
  Weight: 52.21 kg

DRUGS (17)
  1. HUMIRA [Suspect]
     Indication: RHEUMATOID ARTHRITIS
  2. CYMBALTA [Concomitant]
     Indication: RHEUMATOID ARTHRITIS
  3. CYMBALTA [Concomitant]
     Indication: OSTEOARTHRITIS
  4. RANEXA [Concomitant]
     Indication: CARDIAC DISORDER
  5. PLAVIX [Concomitant]
     Indication: CARDIAC DISORDER
  6. DIGOXIN [Concomitant]
     Indication: CARDIAC DISORDER
  7. LIPITOR [Concomitant]
     Indication: BLOOD CHOLESTEROL
  8. LISINOPRIL [Concomitant]
     Indication: BLOOD PRESSURE
  9. ASPIRIN [Concomitant]
     Indication: CARDIAC DISORDER
  10. GABAPENTIN [Concomitant]
     Indication: NERVE INJURY
  11. AMITRIPTYLINE [Concomitant]
     Indication: INSOMNIA
  12. ATIVAN [Concomitant]
     Indication: PAIN
  13. ATIVAN [Concomitant]
     Indication: INSOMNIA
  14. NITROSTAT [Concomitant]
     Indication: CHEST PAIN
     Dosage: AS NEEDED
  15. METOPROLOL [Concomitant]
     Indication: BLOOD PRESSURE
  16. DULCOLAX [Concomitant]
     Indication: CONSTIPATION
  17. PROMETHAZINE [Concomitant]
     Indication: VOMITING

REACTIONS (18)
  - Coma [Unknown]
  - Cardiac arrest [Recovered/Resolved]
  - Bronchopulmonary aspergillosis [Unknown]
  - Nerve injury [Unknown]
  - Fall [Unknown]
  - Fall [Unknown]
  - Nausea [Unknown]
  - Vomiting [Unknown]
  - Diabetes mellitus [Not Recovered/Not Resolved]
  - Asthma [Not Recovered/Not Resolved]
  - Pulmonary mass [Not Recovered/Not Resolved]
  - Brain mass [Unknown]
  - Oropharyngeal discomfort [Unknown]
  - Ear infection [Unknown]
  - Malaise [Not Recovered/Not Resolved]
  - Cough [Not Recovered/Not Resolved]
  - Headache [Not Recovered/Not Resolved]
  - Pain [Not Recovered/Not Resolved]
